FAERS Safety Report 13655348 (Version 2)
Quarter: 2017Q2

REPORT INFORMATION
  Report Type: Spontaneous
  Country: US (occurrence: US)
  Receive Date: 20170615
  Receipt Date: 20170626
  Transmission Date: 20170830
  Serious: Yes (Other)
  Sender: FDA-Public Use
  Company Number: US-009507513-1706USA004840

PATIENT
  Age: 49 Year
  Sex: Male

DRUGS (7)
  1. ZEMURON [Suspect]
     Active Substance: ROCURONIUM BROMIDE
     Route: 042
  2. LIDOCAINE. [Suspect]
     Active Substance: LIDOCAINE
  3. HYDROCORTISONE. [Concomitant]
     Active Substance: HYDROCORTISONE
  4. FAMOTIDINE. [Concomitant]
     Active Substance: FAMOTIDINE
  5. FENTANYL. [Suspect]
     Active Substance: FENTANYL
     Route: 042
  6. PROPOFOL. [Suspect]
     Active Substance: PROPOFOL
     Route: 042
  7. DIPHENHYDRAMINE. [Concomitant]
     Active Substance: DIPHENHYDRAMINE
     Route: 042

REACTIONS (1)
  - Mast cell activation syndrome [Not Recovered/Not Resolved]
